FAERS Safety Report 11519347 (Version 2)
Quarter: 2015Q4

REPORT INFORMATION
  Report Type: Spontaneous
  Country: US (occurrence: US)
  Receive Date: 20150918
  Receipt Date: 20151019
  Transmission Date: 20160304
  Serious: No
  Sender: FDA-Public Use
  Company Number: US-ASTRAZENECA-2015SE89214

PATIENT
  Age: 65 Year
  Sex: Male

DRUGS (2)
  1. NEXIUM 24HR [Suspect]
     Active Substance: ESOMEPRAZOLE MAGNESIUM
     Indication: GASTROOESOPHAGEAL REFLUX DISEASE
     Route: 048
  2. THORAZINE [Concomitant]
     Active Substance: CHLORPROMAZINE

REACTIONS (4)
  - Gastric disorder [Unknown]
  - Hiccups [Not Recovered/Not Resolved]
  - Nervousness [Unknown]
  - Product use issue [Unknown]

NARRATIVE: CASE EVENT DATE: 20150607
